FAERS Safety Report 7544066-9 (Version None)
Quarter: 2011Q2

REPORT INFORMATION
  Report Type: 
  Country: None (occurrence: None)
  Receive Date: 20110613
  Receipt Date: 20051007
  Transmission Date: 20111010
  Serious: Yes (Hospitalization)
  Sender: FDA-Public Use
  Company Number: PHHO2005CA14509

PATIENT
  Sex: Male

DRUGS (7)
  1. VITAMIN D [Concomitant]
  2. PROPRANOLOL [Concomitant]
  3. ENSURE [Concomitant]
  4. ALDACTONE [Concomitant]
  5. NOVO-SEMIDE [Concomitant]
  6. SANDOSTATIN LAR [Suspect]
     Indication: HEPATIC NEOPLASM MALIGNANT
     Dosage: 20 MG, ONCE A MONTH
     Dates: start: 20050820, end: 20050922
  7. CALCIUM CARBONATE [Concomitant]

REACTIONS (4)
  - ASTHENIA [None]
  - DECREASED APPETITE [None]
  - WEIGHT DECREASED [None]
  - CONFUSIONAL STATE [None]
